FAERS Safety Report 21739069 (Version 1)
Quarter: 2022Q4

REPORT INFORMATION
  Report Type: Report from Study
  Country: US (occurrence: US)
  Receive Date: 20221216
  Receipt Date: 20221216
  Transmission Date: 20230113
  Serious: Yes (Death, Life-Threatening, Hospitalization, Other)
  Sender: FDA-Public Use
  Company Number: US-ELI_LILLY_AND_COMPANY-US202211012112

PATIENT
  Age: 61 Year
  Sex: Male
  Weight: 82.7 kg

DRUGS (30)
  1. GEMCITABINE HYDROCHLORIDE [Suspect]
     Active Substance: GEMCITABINE HYDROCHLORIDE
     Indication: Pancreatic carcinoma metastatic
     Dosage: 1000 MG/M2, DAYS 1, 8, 22, AND 29 OF EACH 6-WEEK CYCLE (2WEEKS ON, 1 WEEK OFF)
     Route: 042
     Dates: start: 20220401
  2. HYDROXYCHLOROQUINE [Concomitant]
     Active Substance: HYDROXYCHLOROQUINE
     Indication: Pancreatic carcinoma metastatic
     Dosage: 1200 MG, BID (200MGX3 TAB)
     Route: 048
     Dates: start: 20220401
  3. IPILIMUMAB [Concomitant]
     Active Substance: IPILIMUMAB
     Indication: Pancreatic carcinoma metastatic
     Dosage: 1 MG/KG, EVERY 6 WEEKS
     Route: 042
     Dates: start: 20220422, end: 20220603
  4. PACLITAXEL [Concomitant]
     Active Substance: PACLITAXEL
     Indication: Pancreatic carcinoma metastatic
     Dosage: 80 MG/M2, DAYS 1, 8, 22, AND 29 OF EACH 6-WEEK CYCLE (2WEEKS ON, 1 WEEK OFF)
     Route: 042
     Dates: start: 20220401
  5. TRAZODONE HYDROCHLORIDE [Concomitant]
     Active Substance: TRAZODONE HYDROCHLORIDE
     Indication: Depression
     Dosage: 100 MG, PRN
     Route: 065
     Dates: start: 20211006
  6. TRAZODONE HYDROCHLORIDE [Concomitant]
     Active Substance: TRAZODONE HYDROCHLORIDE
     Indication: Anxiety
     Dosage: 100 MG, DAILY
     Route: 065
     Dates: start: 20220816
  7. EMLA [Concomitant]
     Active Substance: LIDOCAINE\PRILOCAINE
     Indication: Prophylaxis
     Dosage: 2.5-5%, PRN
     Route: 065
     Dates: start: 20220303
  8. ALPRAZOLAM [Concomitant]
     Active Substance: ALPRAZOLAM
     Indication: Anxiety
     Dosage: 0.5 MG EVERY 8 HOURS, PRN
     Dates: start: 20220310
  9. TRAMADOL HYDROCHLORIDE [Concomitant]
     Active Substance: TRAMADOL HYDROCHLORIDE
     Indication: Pain
     Dosage: 50 MG EVERY 8 HOURS, PRN
     Route: 065
     Dates: start: 20220315
  10. HYDROCODONE BITARTRATE AND ACETAMINOPHEN [Concomitant]
     Active Substance: ACETAMINOPHEN\HYDROCODONE BITARTRATE
     Indication: Pain
     Dosage: 5MG-325MG Q6H, PRN
     Route: 065
     Dates: start: 20220327
  11. OXYCODONE [Concomitant]
     Active Substance: OXYCODONE
     Indication: Pain
     Dosage: 5MG Q6H, PRN
     Route: 065
     Dates: start: 20220401
  12. CYCLOBENZAPRINE [Concomitant]
     Active Substance: CYCLOBENZAPRINE
     Indication: Pain
     Dosage: 5 MG, 3/DAYS
     Route: 065
     Dates: start: 20220401
  13. IBUPROFEN [Concomitant]
     Active Substance: IBUPROFEN
     Indication: Pain
     Dosage: 200 MG, 2/DAYS
     Route: 065
     Dates: start: 20220527
  14. NAPROXEN [Concomitant]
     Active Substance: NAPROXEN
     Indication: Pain
     Dosage: 200 MG, 2/DAYS
     Route: 065
     Dates: start: 20220527
  15. PANCRELIPASE [Concomitant]
     Active Substance: PANCRELIPASE
     Indication: Pancreatic failure
     Dosage: 24000-76000-120000 U WITH MEALS, UNKNOWN
     Route: 065
     Dates: start: 20220328
  16. BENZONATATE [Concomitant]
     Active Substance: BENZONATATE
     Indication: Cough
     Dosage: 100 MG Q8H, PRN
     Route: 065
     Dates: start: 20220805
  17. METHYLPHENIDATE HYDROCHLORIDE [Concomitant]
     Active Substance: METHYLPHENIDATE HYDROCHLORIDE
     Indication: Fatigue
     Dosage: 5 MG, EVERY 1 DAYS
     Route: 065
     Dates: start: 20220809
  18. BACTRIM DS [Concomitant]
     Active Substance: SULFAMETHOXAZOLE\TRIMETHOPRIM
     Indication: Cellulitis
     Dosage: 800-160MG, 2/DAYS
     Route: 065
     Dates: start: 20220815
  19. SERTRALINE HYDROCHLORIDE [Concomitant]
     Active Substance: SERTRALINE HYDROCHLORIDE
     Indication: Affective disorder
     Dosage: 50 MG, DAILY
     Route: 065
     Dates: start: 20220322
  20. SERTRALINE HYDROCHLORIDE [Concomitant]
     Active Substance: SERTRALINE HYDROCHLORIDE
     Indication: Depression
     Dosage: 50 MG, DAILY
     Route: 065
     Dates: start: 20220816
  21. CLONAZEPAM [Concomitant]
     Active Substance: CLONAZEPAM
     Indication: Anxiety
     Dosage: 0.5 MG EVERY 1 DAYS, PRN
     Route: 065
     Dates: start: 20220816
  22. SENNA [Concomitant]
     Active Substance: SENNA LEAF\SENNOSIDES\SENNOSIDES A AND B
     Indication: Laxative supportive care
     Dosage: 8.6 MG, 2/DAYS
     Route: 065
     Dates: start: 20221122
  23. ATROPINE SULFATE\DIPHENOXYLATE HYDROCHLORIDE [Concomitant]
     Active Substance: ATROPINE SULFATE\DIPHENOXYLATE HYDROCHLORIDE
     Indication: Diarrhoea
     Dosage: 2.5MG-0.025MG Q6H, PRN
     Route: 065
     Dates: start: 20220930
  24. SPIRONOLACTONE [Concomitant]
     Active Substance: SPIRONOLACTONE
     Indication: Oedema
     Dosage: 50 MG, DAILY
     Route: 065
     Dates: start: 20220930
  25. FUROSEMIDE [Concomitant]
     Active Substance: FUROSEMIDE
     Indication: Oedema
     Dosage: 40 MG, 2/DAYS
     Route: 065
     Dates: start: 20221028
  26. GABAPENTIN [Concomitant]
     Active Substance: GABAPENTIN
     Indication: Neuropathy peripheral
     Dosage: 300 MG, NIGHTLY
     Route: 065
     Dates: start: 20221028
  27. ZINC SULFATE [Concomitant]
     Active Substance: ZINC SULFATE
     Indication: Decreased appetite
     Dosage: 220MG X 5 DOSES, DAILY
     Route: 065
     Dates: start: 20221028, end: 20221101
  28. ONDANSETRON [Concomitant]
     Active Substance: ONDANSETRON
     Indication: Prophylaxis
     Dosage: 8 MG, SINGLE
     Route: 065
     Dates: start: 20220708
  29. PROCHLORPERAZINE EDISYLATE [Concomitant]
     Active Substance: PROCHLORPERAZINE EDISYLATE
     Indication: Nausea
     Dosage: 10 MG Q6H, PRN
     Route: 065
     Dates: start: 20220715
  30. FAMOTIDINE [Concomitant]
     Active Substance: FAMOTIDINE
     Indication: Dyspepsia
     Dosage: 20 MG, DAILY PRN
     Route: 048
     Dates: start: 200001

REACTIONS (2)
  - Multiple organ dysfunction syndrome [Fatal]
  - Pneumonitis [Recovered/Resolved with Sequelae]

NARRATIVE: CASE EVENT DATE: 20221105
